FAERS Safety Report 8347040-8 (Version None)
Quarter: 2012Q2

REPORT INFORMATION
  Report Type: 
  Country: None (occurrence: None)
  Receive Date: 20120509
  Receipt Date: 20120507
  Transmission Date: 20120825
  Serious: Yes (Hospitalization)
  Sender: FDA-Public Use
  Company Number: PHHY2012ES038588

PATIENT
  Age: 76 Year
  Sex: Male

DRUGS (4)
  1. TRILEPTAL [Suspect]
     Indication: EPILEPSY
     Dosage: 3.5 ML, BID
     Route: 048
     Dates: start: 20100701, end: 20100924
  2. FLUOXETINE [Concomitant]
     Dosage: 20 MG, QD
     Route: 048
  3. RISPERDAL [Concomitant]
     Dosage: 2 MG, DAILY
     Route: 048
  4. KEPPRA [Interacting]
     Indication: EPILEPSY
     Dosage: 100 MG, BID
     Route: 048
     Dates: start: 20100701, end: 20100924

REACTIONS (6)
  - ASPIRATION BRONCHIAL [None]
  - DYSPHAGIA [None]
  - GAIT DISTURBANCE [None]
  - SOMNOLENCE [None]
  - DRUG INTERACTION [None]
  - GENERAL PHYSICAL CONDITION ABNORMAL [None]
